FAERS Safety Report 8550895 (Version 4)
Quarter: 2012Q4

REPORT INFORMATION
  Report Type: 
  Country: US (occurrence: US)
  Receive Date: 20120508
  Receipt Date: 20120907
  Transmission Date: 20130627
  Serious: Yes (Disabling, Other)
  Sender: FDA-Public Use
  Company Number: PHEH2012US008506

PATIENT
  Age: 14 Year
  Sex: Male
  Weight: 42.7 kg

DRUGS (7)
  1. AFINITOR [Suspect]
     Indication: TUBEROUS SCLEROSIS
     Dosage: 2.5 mg, UNK
     Route: 048
     Dates: start: 20120324
  2. AFINITOR [Suspect]
     Dosage: 5 mg, daily
     Route: 048
  3. AFINITOR [Suspect]
     Dosage: 7.5 mg, UNK
  4. LAMICTAL [Concomitant]
     Indication: CONVULSION
     Route: 048
  5. RISPERDAL [Concomitant]
     Indication: ABNORMAL BEHAVIOUR
  6. DIASTAT [Concomitant]
  7. SEROQUEL [Concomitant]
     Dosage: 25 mg, BID

REACTIONS (9)
  - Aggression [Unknown]
  - Grand mal convulsion [Unknown]
  - Convulsion [Unknown]
  - Snoring [Unknown]
  - Rhinorrhoea [Unknown]
  - Drug level decreased [Unknown]
  - Anger [None]
  - Cough [None]
  - Drug dose omission [None]
